FAERS Safety Report 6709667-6 (Version None)
Quarter: 2010Q2

REPORT INFORMATION
  Report Type: 
  Country: None (occurrence: None)
  Receive Date: 20100503
  Receipt Date: 20100503
  Transmission Date: 20101027
  Serious: Yes (Hospitalization)
  Sender: FDA-Public Use
  Company Number: None

PATIENT
  Age: 9 Year
  Sex: Male
  Weight: 38.5557 kg

DRUGS (3)
  1. CHILDRENS TYLENOL PLUS FLU 5ML=COMBINED MEDICATIONS [Suspect]
     Indication: COUGH
     Dosage: 10ML FOR 48LB-95LB Q 4HRS PO
     Route: 048
     Dates: start: 20100410, end: 20100413
  2. CHILDRENS TYLENOL PLUS FLU 5ML=COMBINED MEDICATIONS [Suspect]
     Indication: POSTNASAL DRIP
     Dosage: 10ML FOR 48LB-95LB Q 4HRS PO
     Route: 048
     Dates: start: 20100410, end: 20100413
  3. . [Concomitant]

REACTIONS (2)
  - PNEUMONIA [None]
  - PRODUCT QUALITY ISSUE [None]
